FAERS Safety Report 12210276 (Version 2)
Quarter: 2017Q4

REPORT INFORMATION
  Report Type: Spontaneous
  Country: US (occurrence: US)
  Receive Date: 20160325
  Receipt Date: 20171012
  Transmission Date: 20180320
  Serious: Yes (Hospitalization, Disabling)
  Sender: FDA-Public Use
  Company Number: US-ENDO PHARMACEUTICALS INC.-2016-000422

PATIENT
  Age: 64 Year
  Sex: Male
  Weight: 98.41 kg

DRUGS (11)
  1. ANDROGEL [Suspect]
     Active Substance: TESTOSTERONE
     Indication: ANDROGEN REPLACEMENT THERAPY
     Dosage: UNK UNKNOWN, DAILY
     Route: 065
     Dates: start: 2007, end: 2010
  2. GABAPENTIN. [Concomitant]
     Active Substance: GABAPENTIN
     Indication: PAIN
     Dosage: UNK UNKNOWN, UNKNOWN
     Route: 065
     Dates: start: 2007
  3. LEVOTHYROXINE SODIUM TABLETS [Concomitant]
     Active Substance: LEVOTHYROXINE SODIUM
     Indication: HYPOTHYROIDISM
     Dosage: UNK UNKNOWN, UNKNOWN
     Route: 065
     Dates: start: 2010
  4. OMEPRAZOLE. [Concomitant]
     Active Substance: OMEPRAZOLE
     Indication: GASTROOESOPHAGEAL REFLUX DISEASE
     Dosage: UNK UNKNOWN, UNKNOWN
     Route: 065
     Dates: start: 2007
  5. ANDRODERM [Suspect]
     Active Substance: TESTOSTERONE
     Indication: ANDROGEN REPLACEMENT THERAPY
     Dosage: UNK UNKNOWN, DAILY
     Route: 065
     Dates: start: 201004
  6. TESTIM [Suspect]
     Active Substance: TESTOSTERONE
     Indication: ANDROGEN REPLACEMENT THERAPY
     Dosage: UNK UNKNOWN, DAILY
     Route: 062
     Dates: start: 200906, end: 20121221
  7. AXIRON [Suspect]
     Active Substance: TESTOSTERONE
     Indication: ANDROGEN REPLACEMENT THERAPY
     Dosage: UNK UNKNOWN, DAILY
     Route: 061
     Dates: start: 201409
  8. FORTESTA [Suspect]
     Active Substance: TESTOSTERONE
     Indication: ANDROGEN REPLACEMENT THERAPY
     Dosage: UNK UNKNOWN, DAILY
     Route: 061
     Dates: start: 20130307
  9. METHADONE [Concomitant]
     Active Substance: METHADONE HYDROCHLORIDE
     Indication: PAIN
     Dosage: UNK UNKNOWN, UNKNOWN
     Route: 065
     Dates: start: 2006
  10. ANDROGEL [Suspect]
     Active Substance: TESTOSTERONE
     Dosage: UNK UNKNOWN, DAILY
     Route: 065
     Dates: start: 2016
  11. MORPHINE SULFATE ER [Concomitant]
     Active Substance: MORPHINE SULFATE
     Indication: PAIN
     Dosage: UNK UNKNOWN, UNKNOWN
     Route: 065
     Dates: start: 2010, end: 2013

REACTIONS (1)
  - Coronary artery disease [Not Recovered/Not Resolved]

NARRATIVE: CASE EVENT DATE: 20100602
